FAERS Safety Report 5656490-X (Version None)
Quarter: 2008Q1

REPORT INFORMATION
  Report Type: 
  Country: None (occurrence: None)
  Receive Date: 20080309
  Receipt Date: 20080118
  Transmission Date: 20080703
  Serious: No
  Sender: FDA-Public Use
  Company Number: US-BAYER-200810347BCC

PATIENT
  Age: 70 Year
  Sex: Female
  Weight: 56 kg

DRUGS (4)
  1. ALEVE [Suspect]
     Indication: ARTHRALGIA
     Dosage: UNIT DOSE: 220 MG
     Route: 048
     Dates: start: 20071201
  2. LOVASTATIN [Concomitant]
  3. PAXIL [Concomitant]
  4. ATENOLOL [Concomitant]

REACTIONS (1)
  - WEIGHT INCREASED [None]
